FAERS Safety Report 6601013-1 (Version None)
Quarter: 2010Q1

REPORT INFORMATION
  Report Type: 
  Country: None (occurrence: None)
  Receive Date: 20100225
  Receipt Date: 20100217
  Transmission Date: 20100710
  Serious: Yes (Hospitalization, Other)
  Sender: FDA-Public Use
  Company Number: US-BAYER-201014468NA

PATIENT
  Age: 35 Year
  Sex: Female

DRUGS (1)
  1. DROSPIRENONE AND EHTINYL ESTRADIOL [Suspect]
     Indication: DRUG USE FOR UNKNOWN INDICATION
     Route: 048

REACTIONS (4)
  - DEEP VEIN THROMBOSIS [None]
  - KIDNEY INFECTION [None]
  - NEPHROLITHIASIS [None]
  - PULMONARY EMBOLISM [None]
